FAERS Safety Report 4385758-2 (Version None)
Quarter: 2004Q2

REPORT INFORMATION
  Report Type: 
  Country: None (occurrence: None)
  Receive Date: 20040628
  Receipt Date: 20021014
  Transmission Date: 20050107
  Serious: Yes (Hospitalization, Disabling)
  Sender: FDA-Public Use
  Company Number: US-MERCK-0210USA01489

PATIENT
  Age: 57 Year
  Sex: Female
  Weight: 82 kg

DRUGS (4)
  1. AMARYL [Concomitant]
     Route: 065
  2. METFORMIN [Concomitant]
     Route: 065
  3. VIOXX [Suspect]
     Indication: ARTHRALGIA
     Route: 048
     Dates: start: 20000601, end: 20001121
  4. VIOXX [Suspect]
     Indication: ARTHRITIS
     Route: 048
     Dates: start: 20000601, end: 20001121

REACTIONS (38)
  - ANAEMIA [None]
  - APNOEA [None]
  - ASTHMA [None]
  - ATRIAL TACHYCARDIA [None]
  - BLOOD CHOLESTEROL ABNORMAL [None]
  - BRAIN HYPOXIA [None]
  - CARDIAC ARREST [None]
  - CARDIAC FAILURE CONGESTIVE [None]
  - CARDIAC VALVE DISEASE [None]
  - CARDIO-RESPIRATORY ARREST [None]
  - CARDIOMEGALY [None]
  - CARDIOMYOPATHY [None]
  - CATARACT [None]
  - COMA [None]
  - CONSTIPATION [None]
  - CONVULSION [None]
  - CORONARY ARTERY DISEASE [None]
  - DIABETES MELLITUS [None]
  - DIZZINESS [None]
  - EMOTIONAL DISTRESS [None]
  - EXCORIATION [None]
  - GRAND MAL CONVULSION [None]
  - HEPATITIS B [None]
  - HYPERTENSION [None]
  - HYPOAESTHESIA [None]
  - INJURY [None]
  - LACUNAR INFARCTION [None]
  - LUNG DISORDER [None]
  - MYOCARDIAL INFARCTION [None]
  - NAUSEA [None]
  - NERVOUS SYSTEM DISORDER [None]
  - PARAESTHESIA [None]
  - SARCOIDOSIS [None]
  - SICK SINUS SYNDROME [None]
  - SINUS BRADYCARDIA [None]
  - SLEEP APNOEA SYNDROME [None]
  - SYNCOPE [None]
  - THROMBOSIS [None]
